FAERS Safety Report 17502034 (Version 2)
Quarter: 2020Q2

REPORT INFORMATION
  Report Type: Spontaneous
  Country: US (occurrence: US)
  Receive Date: 20200305
  Receipt Date: 20200429
  Transmission Date: 20200713
  Serious: No
  Sender: FDA-Public Use
  Company Number: US-JNJFOC-20200243697

PATIENT
  Age: 68 Year
  Sex: Female
  Weight: 72.64 kg

DRUGS (32)
  1. SIMETHICONE (DIMETHICONE) [Concomitant]
     Active Substance: DIMETHICONE
     Dosage: 125 X2
     Route: 065
  2. XOPENEX [Concomitant]
     Active Substance: LEVALBUTEROL HYDROCHLORIDE
  3. METHYL [Concomitant]
  4. HYDROXYZINE HCL [Concomitant]
     Active Substance: HYDROXYZINE HYDROCHLORIDE
     Dosage: PRN
  5. STELARA [Suspect]
     Active Substance: USTEKINUMAB
     Indication: COLITIS ULCERATIVE
     Route: 042
     Dates: start: 20200206
  6. DICYCLOMINE                        /00068601/ [Concomitant]
     Active Substance: DICYCLOMINE HYDROCHLORIDE
     Indication: COLITIS
  7. LEVOTHYROXINE. [Concomitant]
     Active Substance: LEVOTHYROXINE
     Route: 048
  8. METOPROLOL TARTRATE. [Concomitant]
     Active Substance: METOPROLOL TARTRATE
  9. TURMERIC                           /01079602/ [Concomitant]
     Active Substance: HERBALS\TURMERIC
     Dosage: PRN
  10. BENADRYL [Concomitant]
     Active Substance: DIPHENHYDRAMINE HYDROCHLORIDE
     Dosage: 1-2 PRN
  11. LEKOVIT CA [Concomitant]
     Active Substance: CALCIUM CARBONATE\CHOLECALCIFEROL
     Dosage: 500 MG AND 800 IU
  12. BIOFREEZE                          /00482701/ [Concomitant]
     Indication: PAIN
  13. DOCUSATE SODIUM. [Concomitant]
     Active Substance: DOCUSATE SODIUM
  14. HYDROCORTISONE. [Concomitant]
     Active Substance: HYDROCORTISONE
     Route: 048
  15. NORTRIPTYLINE [Concomitant]
     Active Substance: NORTRIPTYLINE
     Route: 065
  16. OMEPRAZOLE. [Concomitant]
     Active Substance: OMEPRAZOLE
     Indication: COLITIS
     Route: 065
  17. PEPPERMINT                         /01649801/ [Concomitant]
     Route: 065
  18. STREPTOMYCIN [Concomitant]
     Active Substance: STREPTOMYCIN SULFATE
     Route: 065
  19. IPRATROPIUM BROMIDE AND SALBUTAMOL SULFATE [Concomitant]
     Active Substance: ALBUTEROL SULFATE\IPRATROPIUM BROMIDE
     Route: 065
  20. HIZENTRA [Concomitant]
     Active Substance: HUMAN IMMUNOGLOBULIN G
  21. LINZESS [Concomitant]
     Active Substance: LINACLOTIDE
     Dosage: PRN
  22. ONDANSETRON HCL [Concomitant]
     Active Substance: ONDANSETRON HYDROCHLORIDE
     Indication: COLITIS
     Route: 065
  23. TEMAZEPAM. [Concomitant]
     Active Substance: TEMAZEPAM
     Route: 065
  24. PROBIOTICS NOS [Concomitant]
     Active Substance: PROBIOTICS NOS
     Dosage: 50 BILLION
  25. ACETAMINOPHEN. [Concomitant]
     Active Substance: ACETAMINOPHEN
     Indication: ARTHRITIS
     Dosage: PRN
  26. HYDROXYZINE [Concomitant]
     Active Substance: HYDROXYZINE HYDROCHLORIDE
     Dosage: PRN
  27. VITAMIN D2 [Concomitant]
     Active Substance: ERGOCALCIFEROL
     Dosage: 1.2550000 UNIT
  28. DELZICOL [Concomitant]
     Active Substance: MESALAMINE
     Route: 048
  29. ZYRTEC [Concomitant]
     Active Substance: CETIRIZINE HYDROCHLORIDE
     Dosage: PRN
  30. BISCODYL [Concomitant]
     Active Substance: BISACODYL
     Dosage: 2 PRN
  31. GINGER                             /01646602/ [Concomitant]
  32. METAXALONE. [Concomitant]
     Active Substance: METAXALONE

REACTIONS (17)
  - Confusional state [Recovering/Resolving]
  - Crying [Recovered/Resolved]
  - Tremor [Recovered/Resolved]
  - Pain [Recovered/Resolved]
  - Asthenia [Recovered/Resolved]
  - Amnesia [Recovered/Resolved]
  - Back pain [Recovered/Resolved]
  - Dysphemia [Recovering/Resolving]
  - Aphasia [Recovered/Resolved]
  - Nightmare [Recovered/Resolved]
  - Pain in extremity [Unknown]
  - Psychogenic seizure [Recovered/Resolved]
  - Malaise [Recovered/Resolved]
  - Tic [Recovering/Resolving]
  - Fear [Recovered/Resolved]
  - Tremor [Recovering/Resolving]
  - Gait disturbance [Recovering/Resolving]

NARRATIVE: CASE EVENT DATE: 20200207
